FAERS Safety Report 5529045-5 (Version None)
Quarter: 2007Q4

REPORT INFORMATION
  Report Type: 
  Country: None (occurrence: None)
  Receive Date: 20071129
  Receipt Date: 20070327
  Transmission Date: 20080405
  Serious: No
  Sender: FDA-Public Use
  Company Number: A0609887B

PATIENT

DRUGS (1)
  1. WELLBUTRIN SR [Suspect]
     Indication: SEASONAL AFFECTIVE DISORDER
     Dosage: 150MG TWICE PER DAY
     Dates: start: 20060302

REACTIONS (1)
  - DRUG EXPOSURE VIA BREAST MILK [None]
